FAERS Safety Report 7931569-8 (Version None)
Quarter: 2011Q4

REPORT INFORMATION
  Report Type: 
  Country: None (occurrence: None)
  Receive Date: 20111121
  Receipt Date: 20111121
  Transmission Date: 20120403
  Serious: Yes (Life-Threatening)
  Sender: FDA-Public Use
  Company Number: None

PATIENT
  Age: 51 Year
  Sex: Female
  Weight: 58.967 kg

DRUGS (1)
  1. LOESTRIN 24 FE [Suspect]
     Indication: HORMONE LEVEL ABNORMAL
     Dosage: 1 TABLET
     Route: 048
     Dates: start: 20101101, end: 20110304

REACTIONS (3)
  - PAIN IN EXTREMITY [None]
  - THROMBOSIS [None]
  - OEDEMA PERIPHERAL [None]
